FAERS Safety Report 19972354 (Version 2)
Quarter: 2021Q4

REPORT INFORMATION
  Report Type: Report from Study
  Country: ES (occurrence: ES)
  Receive Date: 20211019
  Receipt Date: 20211026
  Transmission Date: 20220303
  Serious: No
  Sender: FDA-Public Use
  Company Number: ES-AKCEA THERAPEUTICS, INC.-2021IS001645

PATIENT
  Age: 74 Year
  Sex: Female

DRUGS (3)
  1. TEGSEDI [Suspect]
     Active Substance: INOTERSEN SODIUM
     Indication: Hereditary neuropathic amyloidosis
     Route: 058
  2. DEVICE [Suspect]
     Active Substance: DEVICE
  3. TEGSEDI [Suspect]
     Active Substance: INOTERSEN SODIUM
     Route: 058

REACTIONS (14)
  - Full blood count abnormal [Recovering/Resolving]
  - Laboratory test abnormal [Not Recovered/Not Resolved]
  - Urine analysis abnormal [Not Recovered/Not Resolved]
  - Abdominal distension [Recovered/Resolved]
  - Platelet count decreased [Not Recovered/Not Resolved]
  - White blood cell count decreased [Not Recovered/Not Resolved]
  - Monocyte count abnormal [Not Recovered/Not Resolved]
  - Neutrophil count abnormal [Not Recovered/Not Resolved]
  - Blood creatinine abnormal [Unknown]
  - pH urine abnormal [Unknown]
  - Protein urine present [Unknown]
  - Creatinine urine abnormal [Unknown]
  - Albumin urine present [Unknown]
  - Eosinophil count abnormal [Unknown]

NARRATIVE: CASE EVENT DATE: 20210823
